FAERS Safety Report 9125574 (Version 1)
Quarter: 2013Q1

REPORT INFORMATION
  Report Type: Spontaneous
  Country: DE (occurrence: DE)
  Receive Date: 20130117
  Receipt Date: 20130117
  Transmission Date: 20140127
  Serious: Yes (Other)
  Sender: FDA-Public Use
  Company Number: DE-009507513-1212DEU001995

PATIENT
  Sex: Female

DRUGS (3)
  1. VICTRELIS [Suspect]
     Dosage: UNK
  2. REBETOL [Suspect]
     Dosage: UNK
  3. PEGINTRON [Suspect]
     Dosage: UNK

REACTIONS (2)
  - Abortion induced [Unknown]
  - Exposure via father [Recovered/Resolved]
